FAERS Safety Report 6370811-4 (Version None)
Quarter: 2009Q3

REPORT INFORMATION
  Report Type: 
  Country: None (occurrence: None)
  Receive Date: 20090923
  Receipt Date: 20070606
  Transmission Date: 20100115
  Serious: Yes (Other)
  Sender: FDA-Public Use
  Company Number: US-ASTRAZENECA-2006UW24786

PATIENT
  Age: 38 Year
  Sex: Female
  Weight: 117.9 kg

DRUGS (21)
  1. SEROQUEL [Suspect]
     Indication: DEPRESSION
     Dosage: 300MG - 600MG
     Route: 048
     Dates: start: 20030101
  2. SEROQUEL [Suspect]
     Route: 048
     Dates: start: 20001011
  3. SEROQUEL [Suspect]
     Route: 048
  4. SEROQUEL [Suspect]
     Route: 048
  5. GEODON [Concomitant]
  6. HALDOL [Concomitant]
  7. RISPERDAL [Concomitant]
  8. THORAZINE [Concomitant]
  9. TRILAFON [Concomitant]
  10. ZYPREXA [Concomitant]
  11. METOPROLOL TARTRATE [Concomitant]
     Route: 048
  12. METOPROLOL TARTRATE [Concomitant]
     Route: 048
  13. LAMICTAL [Concomitant]
     Route: 048
  14. LAMICTAL [Concomitant]
     Route: 048
  15. SYNTHROID [Concomitant]
     Dosage: 200 MCG Q AM
     Route: 048
  16. LEXAPRO [Concomitant]
     Dosage: STRENGTH 10 TO 20 MG
     Route: 065
  17. CELEXA [Concomitant]
     Route: 048
  18. SINGULAIR [Concomitant]
     Dosage: 10 MG Q AM
     Route: 048
  19. ALBUTEROL [Concomitant]
     Route: 065
  20. VALPROIC ACID [Concomitant]
     Route: 048
  21. ALPRAZOLAM [Concomitant]
     Route: 065

REACTIONS (4)
  - BLOOD CHOLESTEROL INCREASED [None]
  - BLOOD TRIGLYCERIDES [None]
  - OBESITY [None]
  - PANCREATITIS [None]
